FAERS Safety Report 9853484 (Version 4)
Quarter: 2014Q2

REPORT INFORMATION
  Report Type: Spontaneous
  Country: GB (occurrence: GB)
  Receive Date: 20140129
  Receipt Date: 20140506
  Transmission Date: 20141212
  Serious: Yes (Other)
  Sender: FDA-Public Use
  Company Number: GB-WATSON-2014-00824

PATIENT
  Sex: Male

DRUGS (3)
  1. PREDNISOLONE (UNKNOWN) [Suspect]
     Indication: PRODUCT USED FOR UNKNOWN INDICATION
     Dosage: 5 MG, UNKNOWN
     Route: 065
  2. ZYTIGA [Suspect]
     Indication: PROSTATE CANCER
     Dosage: 500 MG, UNKNOWN
     Route: 065
     Dates: start: 201402
  3. ZYTIGA [Suspect]
     Dosage: 1000 MG, UNKNOWN
     Route: 065

REACTIONS (3)
  - Duodenal ulcer perforation [Unknown]
  - Drug prescribing error [Unknown]
  - Off label use [Unknown]
